FAERS Safety Report 7557117-2 (Version None)
Quarter: 2011Q2

REPORT INFORMATION
  Report Type: 
  Country: None (occurrence: None)
  Receive Date: 20110616
  Receipt Date: 20110616
  Transmission Date: 20111010
  Serious: Yes (Other)
  Sender: FDA-Public Use
  Company Number: None

PATIENT
  Sex: Female
  Weight: 49.8957 kg

DRUGS (3)
  1. ZOLOFT [Suspect]
  2. LEXAPRO [Suspect]
     Indication: OBSESSIVE-COMPULSIVE DISORDER
  3. LEXAPRO [Suspect]
     Indication: ANXIETY

REACTIONS (3)
  - LIBIDO DECREASED [None]
  - SEXUAL DYSFUNCTION [None]
  - FEMALE ORGASMIC DISORDER [None]
